FAERS Safety Report 4808600-1 (Version None)
Quarter: 2005Q4

REPORT INFORMATION
  Report Type: 
  Country: None (occurrence: None)
  Receive Date: 20051025
  Receipt Date: 20051013
  Transmission Date: 20060501
  Serious: Yes (Hospitalization)
  Sender: FDA-Public Use
  Company Number: FR-GLAXOSMITHKLINE-B0398071A

PATIENT
  Age: 53 Year
  Sex: Female
  Weight: 56 kg

DRUGS (5)
  1. ALKERAN [Suspect]
     Dosage: 220MG PER DAY
     Route: 042
     Dates: start: 20050709, end: 20050709
  2. VALIUM [Concomitant]
     Dosage: 5MG THREE TIMES PER DAY
     Route: 048
     Dates: start: 20050704, end: 20050709
  3. BUSULFAN [Concomitant]
     Dosage: 60MG FOUR TIMES PER DAY
     Route: 048
     Dates: start: 20050705, end: 20050708
  4. ANZEMET [Concomitant]
     Indication: VOMITING
     Dosage: 1UNIT PER DAY
     Route: 042
     Dates: start: 20050705, end: 20050711
  5. NEXIUM [Concomitant]
     Indication: GASTRITIS
     Route: 048
     Dates: start: 20050708

REACTIONS (1)
  - MYOCLONUS [None]
